FAERS Safety Report 12808154 (Version 5)
Quarter: 2017Q1

REPORT INFORMATION
  Report Type: Report from Study
  Country: None (occurrence: TR)
  Receive Date: 20161004
  Receipt Date: 20170203
  Transmission Date: 20170428
  Serious: Yes (Other)
  Sender: FDA-Public Use
  Company Number: TR-ABBVIE-16K-161-1739925-00

PATIENT
  Age: 36 Year
  Sex: Female
  Weight: 80 kg

DRUGS (3)
  1. HUMIRA [Suspect]
     Active Substance: ADALIMUMAB
     Indication: ANKYLOSING SPONDYLITIS
     Route: 058
     Dates: start: 20131120, end: 20150915
  2. CIMZIA [Suspect]
     Active Substance: CERTOLIZUMAB PEGOL
     Indication: PRODUCT USED FOR UNKNOWN INDICATION
     Route: 065
     Dates: start: 2016, end: 2016
  3. HUMIRA [Suspect]
     Active Substance: ADALIMUMAB
     Route: 058
     Dates: start: 20160920, end: 20160920

REACTIONS (10)
  - Thyroid dysfunction in pregnancy [Recovered/Resolved]
  - Suppressed lactation [Recovered/Resolved]
  - Ankylosing spondylitis [Recovered/Resolved]
  - Umbilical hernia [Recovered/Resolved]
  - Injection site bruising [Recovered/Resolved]
  - Exposure during pregnancy [Unknown]
  - Influenza [Not Recovered/Not Resolved]
  - Normal newborn [Unknown]
  - Injection site haemorrhage [Recovered/Resolved]
  - Bronchitis [Not Recovered/Not Resolved]

NARRATIVE: CASE EVENT DATE: 2016
